FAERS Safety Report 4585914-4 (Version None)
Quarter: 2005Q1

REPORT INFORMATION
  Report Type: 
  Country: None (occurrence: None)
  Receive Date: 20050214
  Receipt Date: 20050203
  Transmission Date: 20050727
  Serious: Yes (Death)
  Sender: FDA-Public Use
  Company Number: BUS-022005-001

PATIENT
  Age: 18 Year
  Sex: Male

DRUGS (7)
  1. BUSULFEX [Suspect]
     Indication: ACUTE LYMPHOCYTIC LEUKAEMIA
     Dosage: 192 MG/DAY (=(48MG/DOSE X 4 TIMES)-IV
     Route: 042
     Dates: start: 20020904, end: 20040907
  2. CYCLOPHOSPHAMIDE [Concomitant]
  3. PHENYTOIN [Concomitant]
  4. ZOFRAN [Concomitant]
  5. ALLOPURINOL [Concomitant]
  6. ANTIBIOTICS [Concomitant]
  7. IMUNOSUPPRESSANTS [Concomitant]

REACTIONS (6)
  - COAGULOPATHY [None]
  - HAEMATOCHEZIA [None]
  - HAEMATURIA [None]
  - HAEMORRHAGE [None]
  - PULMONARY HAEMORRHAGE [None]
  - VENOOCCLUSIVE LIVER DISEASE [None]
